FAERS Safety Report 16966350 (Version 3)
Quarter: 2019Q4

REPORT INFORMATION
  Report Type: Spontaneous
  Country: ES (occurrence: ES)
  Receive Date: 20191028
  Receipt Date: 20191107
  Transmission Date: 20200122
  Serious: Yes (Death, Other)
  Sender: FDA-Public Use
  Company Number: ES-009507513-1910ESP015155

PATIENT
  Age: 73 Year
  Sex: Male

DRUGS (12)
  1. IVERMECTIN. [Suspect]
     Active Substance: IVERMECTIN
     Indication: STRONGYLOIDIASIS
     Dosage: UNK
     Route: 048
     Dates: start: 201202, end: 201202
  2. CHLORAMBUCIL [Concomitant]
     Active Substance: CHLORAMBUCIL
     Indication: CHRONIC LYMPHOCYTIC LEUKAEMIA
     Dosage: UNK
     Dates: start: 2002
  3. LEVOFLOXACIN. [Concomitant]
     Active Substance: LEVOFLOXACIN
     Indication: BORDETELLA INFECTION
     Dosage: UNK
     Dates: start: 20120125
  4. COLISTIN [Concomitant]
     Active Substance: COLISTIN
     Indication: ACINETOBACTER INFECTION
     Dosage: UNK
     Dates: start: 201202
  5. COLISTIN [Concomitant]
     Active Substance: COLISTIN
     Indication: CANDIDA INFECTION
  6. TIGECYCLINE. [Concomitant]
     Active Substance: TIGECYCLINE
     Indication: CANDIDA INFECTION
  7. DAPTOMYCIN. [Suspect]
     Active Substance: DAPTOMYCIN
     Indication: ENTEROCOCCAL INFECTION
     Dosage: 10 MILLIGRAM/KILOGRAM, UNK
     Dates: start: 201202, end: 201202
  8. NOREPINEPHRINE. [Concomitant]
     Active Substance: NOREPINEPHRINE
     Indication: SEPTIC SHOCK
     Dosage: UNK
     Dates: start: 20120201
  9. VORICONAZOLE. [Concomitant]
     Active Substance: VORICONAZOLE
     Indication: CANDIDA INFECTION
  10. VORICONAZOLE. [Concomitant]
     Active Substance: VORICONAZOLE
     Indication: ACINETOBACTER INFECTION
     Dosage: UNK
     Dates: start: 201202
  11. AMOXICILLIN (+) CLAVULANATE POTASSIUM [Concomitant]
     Active Substance: AMOXICILLIN\CLAVULANATE POTASSIUM
     Indication: PNEUMONIA
     Dosage: UNK
     Dates: start: 201201
  12. TIGECYCLINE. [Concomitant]
     Active Substance: TIGECYCLINE
     Indication: ACINETOBACTER INFECTION
     Dosage: HIGH DOSES
     Dates: start: 201202

REACTIONS (6)
  - Strongyloidiasis [Unknown]
  - Off label use [Unknown]
  - Multiple organ dysfunction syndrome [Unknown]
  - Death [Fatal]
  - Bronchopulmonary aspergillosis [Unknown]
  - Enterobacter bacteraemia [Unknown]

NARRATIVE: CASE EVENT DATE: 201202
